FAERS Safety Report 20147426 (Version 3)
Quarter: 2022Q1

REPORT INFORMATION
  Report Type: Spontaneous
  Country: US (occurrence: US)
  Receive Date: 20211203
  Receipt Date: 20220327
  Transmission Date: 20220423
  Serious: No
  Sender: FDA-Public Use
  Company Number: US-SA-SAC20211128000084

PATIENT
  Age: 62 Year
  Sex: Female

DRUGS (2)
  1. DUPIXENT [Suspect]
     Active Substance: DUPILUMAB
     Indication: Dermatitis atopic
     Dosage: 600 MG, 1X
     Route: 058
     Dates: start: 202110
  2. DUPIXENT [Suspect]
     Active Substance: DUPILUMAB
     Indication: Asthma
     Dosage: 300 MG, QOW
     Route: 058
     Dates: start: 2021

REACTIONS (11)
  - Eye swelling [Unknown]
  - Ocular hyperaemia [Unknown]
  - Gastric disorder [Unknown]
  - Visual impairment [Unknown]
  - Injection site warmth [Unknown]
  - Paraesthesia [Not Recovered/Not Resolved]
  - Oropharyngeal pain [Unknown]
  - Injection site swelling [Unknown]
  - Eye pruritus [Unknown]
  - Injection site pain [Unknown]
  - Product use issue [Unknown]
